FAERS Safety Report 13612287 (Version 3)
Quarter: 2017Q3

REPORT INFORMATION
  Report Type: Other
  Country: NO (occurrence: NO)
  Receive Date: 20170605
  Receipt Date: 20170801
  Transmission Date: 20171127
  Serious: Yes (Hospitalization)
  Sender: FDA-Public Use
  Company Number: NO-CELLTRION INC.-2017NO007044

PATIENT

DRUGS (4)
  1. INFLECTRA [Suspect]
     Active Substance: INFLIXIMAB-DYYB
     Dosage: 400 MG, SINGLE
     Route: 042
  2. VOLTAREN [Concomitant]
     Active Substance: DICLOFENAC SODIUM
     Dosage: 50 MG AS NEEDED.
  3. INFLECTRA [Suspect]
     Active Substance: INFLIXIMAB-DYYB
     Indication: SPONDYLITIS
     Dosage: 400 MG, SINGLE
     Route: 042
     Dates: start: 20170131, end: 20170131
  4. INFLECTRA [Suspect]
     Active Substance: INFLIXIMAB-DYYB
     Dosage: 400 MG, SINGLE
     Route: 042
     Dates: start: 20170315, end: 20170315

REACTIONS (5)
  - Product use in unapproved indication [Recovering/Resolving]
  - Rash generalised [Recovering/Resolving]
  - Rash [Recovering/Resolving]
  - Pustular psoriasis [Recovering/Resolving]
  - Oral candidiasis [Recovering/Resolving]

NARRATIVE: CASE EVENT DATE: 20170131
